FAERS Safety Report 19129178 (Version 2)
Quarter: 2021Q2

REPORT INFORMATION
  Report Type: Spontaneous
  Country: US (occurrence: US)
  Receive Date: 20210413
  Receipt Date: 20210420
  Transmission Date: 20210717
  Serious: No
  Sender: FDA-Public Use
  Company Number: US-SA-2021SA119532

PATIENT
  Sex: Female

DRUGS (3)
  1. AUBAGIO [Suspect]
     Active Substance: TERIFLUNOMIDE
  2. AVONEX [Suspect]
     Active Substance: INTERFERON BETA-1A
  3. VUMERITY [Suspect]
     Active Substance: DIROXIMEL FUMARATE

REACTIONS (9)
  - Erythema [Recovered/Resolved]
  - Dyspepsia [Recovered/Resolved]
  - Feeling abnormal [Unknown]
  - Blood pressure increased [Unknown]
  - Memory impairment [Unknown]
  - Tongue discomfort [Recovered/Resolved]
  - Palpitations [Unknown]
  - Alopecia [Unknown]
  - Flushing [Recovered/Resolved]
